FAERS Safety Report 20167555 (Version 3)
Quarter: 2021Q4

REPORT INFORMATION
  Report Type: Report from Study
  Country: US (occurrence: US)
  Receive Date: 20211209
  Receipt Date: 20211221
  Transmission Date: 20220304
  Serious: Yes (Death)
  Sender: FDA-Public Use
  Company Number: US-ABBVIE-21K-163-4191479-00

PATIENT
  Age: 76 Year
  Sex: Male

DRUGS (4)
  1. DUOPA [Suspect]
     Active Substance: CARBIDOPA\LEVODOPA
     Indication: Parkinson^s disease
     Dosage: 4.63-20MG/ML UP TO 16 HR EACH DAY MORNING DOSE 15.5ML CONTINUOUS DOSE:5.8ML EXTRA DOSE 1ML
     Route: 050
     Dates: start: 202110, end: 2021
  2. DUOPA [Suspect]
     Active Substance: CARBIDOPA\LEVODOPA
     Dosage: 4.63-20MG/ML UP TO 16 HR EACH DAY MORNING DOSE 15.5ML CONTINUOUS DOSE:5.8ML EXTRA DOSE 1ML
     Route: 050
     Dates: start: 202111, end: 20211127
  3. CARBIDOPA\LEVODOPA [Concomitant]
     Active Substance: CARBIDOPA\LEVODOPA
     Indication: Parkinson^s disease
  4. ROPINIROLE [Concomitant]
     Active Substance: ROPINIROLE
     Indication: Parkinson^s disease

REACTIONS (1)
  - Infection [Fatal]

NARRATIVE: CASE EVENT DATE: 20211101
